FAERS Safety Report 5397472-5 (Version None)
Quarter: 2007Q3

REPORT INFORMATION
  Report Type: 
  Country: None (occurrence: None)
  Receive Date: 20070723
  Receipt Date: 20070723
  Transmission Date: 20080115
  Serious: Yes (Other)
  Sender: FDA-Public Use
  Company Number: None

PATIENT
  Sex: Female

DRUGS (1)
  1. PANOKASE, 16, BRECKENRIDGE [Suspect]
     Indication: PANCREATIC ENZYMES DECREASED
     Dosage: 4 TABS TID WITH MEALS  PO
     Route: 048
     Dates: start: 20070611, end: 20070621

REACTIONS (1)
  - DRUG EFFECT DECREASED [None]
